FAERS Safety Report 9898374 (Version 1)
Quarter: 2014Q1

REPORT INFORMATION
  Report Type: Spontaneous
  Country: FR (occurrence: FR)
  Receive Date: 20140214
  Receipt Date: 20140214
  Transmission Date: 20141002
  Serious: Yes (Hospitalization)
  Sender: FDA-Public Use
  Company Number: FR-ELI_LILLY_AND_COMPANY-FR201402001294

PATIENT
  Age: 52 Year
  Sex: Female

DRUGS (3)
  1. ALIMTA [Suspect]
     Indication: PRODUCT USED FOR UNKNOWN INDICATION
     Dosage: 850 MG, 3 WEEKS
     Route: 042
     Dates: start: 20130313, end: 20130425
  2. CISPLATINE [Suspect]
     Indication: PRODUCT USED FOR UNKNOWN INDICATION
     Dosage: 128 MG, 3 WEEKS
     Route: 042
     Dates: start: 20130313, end: 20130425
  3. ERBITUX [Concomitant]
     Dosage: 685 MG, 3 WEEKS
     Dates: start: 20130313, end: 20130425

REACTIONS (2)
  - Hypokalaemia [Recovered/Resolved]
  - Vomiting [Recovered/Resolved]
